FAERS Safety Report 6993847-9 (Version None)
Quarter: 2010Q3

REPORT INFORMATION
  Report Type: 
  Country: None (occurrence: None)
  Receive Date: 20100917
  Receipt Date: 20091013
  Transmission Date: 20110219
  Serious: No
  Sender: FDA-Public Use
  Company Number: US-ASTRAZENECA-2007UW13961

PATIENT
  Age: 23 Year
  Sex: Male
  Weight: 113.4 kg

DRUGS (20)
  1. SEROQUEL [Suspect]
     Indication: SLEEP DISORDER
     Route: 048
     Dates: start: 20050907, end: 20070501
  2. SEROQUEL [Suspect]
     Indication: SCHIZOPHRENIA
     Route: 048
     Dates: start: 20050907, end: 20070501
  3. SEROQUEL [Suspect]
     Route: 048
     Dates: start: 20050914
  4. SEROQUEL [Suspect]
     Route: 048
     Dates: start: 20050914
  5. RISPERDAL [Suspect]
     Indication: SCHIZOPHRENIA
     Route: 065
     Dates: start: 20050925
  6. RISPERDAL [Suspect]
     Route: 065
     Dates: start: 20050926
  7. ZOLOFT [Concomitant]
     Dates: start: 20050914
  8. AMBIEN [Concomitant]
     Dates: start: 20050919
  9. DIPHENHYDRAMINE HCL [Concomitant]
     Dates: start: 20050926
  10. LORAZEPAM [Concomitant]
     Dates: start: 20050925
  11. DEPAKOTE ER [Concomitant]
     Dates: start: 20050926
  12. ABILIFY [Concomitant]
     Dates: start: 20060328
  13. GLIPIZIDE [Concomitant]
     Dates: start: 20060522
  14. GEODON [Concomitant]
     Dates: start: 20060607
  15. GEODON [Concomitant]
     Dates: start: 20050101, end: 20060101
  16. TRILEPTAL [Concomitant]
     Dates: start: 20060607
  17. METFORMIN HCL [Concomitant]
     Dates: start: 20080120
  18. LEVOTHYROXINE SODIUM [Concomitant]
     Dosage: 50 M
     Dates: start: 20080130
  19. LANTUS [Concomitant]
     Dosage: 100 UNITS/ML
     Dates: start: 20080130
  20. DEPAKOTE [Concomitant]
     Dates: start: 20050101

REACTIONS (4)
  - BLOOD CHOLESTEROL INCREASED [None]
  - HEPATOMEGALY [None]
  - HYPERLIPIDAEMIA [None]
  - TYPE 2 DIABETES MELLITUS [None]
